FAERS Safety Report 24914066 (Version 3)
Quarter: 2025Q1

REPORT INFORMATION
  Report Type: Report from Study
  Country: CA (occurrence: CA)
  Receive Date: 20250202
  Receipt Date: 20250307
  Transmission Date: 20250409
  Serious: Yes (Hospitalization, Other)
  Sender: ABBVIE
  Company Number: CA-ABBVIE-6105561

PATIENT
  Age: 49 Year
  Sex: Male
  Weight: 100 kg

DRUGS (1)
  1. SKYRIZI [Suspect]
     Active Substance: RISANKIZUMAB-RZAA
     Indication: Psoriasis
     Route: 058
     Dates: start: 20220622

REACTIONS (12)
  - Pneumonia [Unknown]
  - Head injury [Unknown]
  - Adenocarcinoma of colon [Unknown]
  - Seizure [Unknown]
  - Fall [Unknown]
  - Gastrointestinal disorder [Unknown]
  - Colectomy [Unknown]
  - Neoplasm [Unknown]
  - Gastrointestinal wall thickening [Unknown]
  - Lymphadenopathy [Unknown]
  - Abdominal lymphadenopathy [Unknown]
  - Retroperitoneal lymphadenopathy [Unknown]

NARRATIVE: CASE EVENT DATE: 20240101
